FAERS Safety Report 8421096-6 (Version None)
Quarter: 2012Q2

REPORT INFORMATION
  Report Type: 
  Country: None (occurrence: None)
  Receive Date: 20120604
  Receipt Date: 20120604
  Transmission Date: 20120825
  Serious: Yes (Other)
  Sender: FDA-Public Use
  Company Number: None

PATIENT
  Age: 28 Year
  Sex: Female
  Weight: 58.9676 kg

DRUGS (4)
  1. OXYCONTIN [Suspect]
     Indication: INTERVERTEBRAL DISC DEGENERATION
     Dosage: 40MG 12 HOURS PO
     Route: 048
     Dates: start: 20120401, end: 20120601
  2. OXYCONTIN [Suspect]
     Indication: SPINAL DISORDER
     Dosage: 40MG 12 HOURS PO
     Route: 048
     Dates: start: 20120401, end: 20120601
  3. PERCOCET [Concomitant]
  4. SOMA [Concomitant]

REACTIONS (4)
  - DRUG EFFECT DELAYED [None]
  - HEADACHE [None]
  - GASTROINTESTINAL DISORDER [None]
  - DRUG EFFECT DECREASED [None]
